FAERS Safety Report 5789228-6 (Version None)
Quarter: 2008Q2

REPORT INFORMATION
  Report Type: 
  Country: None (occurrence: None)
  Receive Date: 20080626
  Receipt Date: 20080131
  Transmission Date: 20081010
  Serious: No
  Sender: FDA-Public Use
  Company Number: US-ASTRAZENECA-2008UW02178

PATIENT
  Age: 88 Year
  Sex: Female
  Weight: 62.6 kg

DRUGS (3)
  1. PULMICORT RESPULES [Suspect]
     Indication: ASTHMA
     Route: 055
     Dates: start: 20070801
  2. ATACAND [Concomitant]
  3. FUROSEMIDE [Concomitant]

REACTIONS (1)
  - ALOPECIA [None]
